FAERS Safety Report 6025637-8 (Version None)
Quarter: 2008Q4

REPORT INFORMATION
  Report Type: 
  Country: None (occurrence: None)
  Receive Date: 20081231
  Receipt Date: 20081225
  Transmission Date: 20090506
  Serious: Yes (Hospitalization, Other)
  Sender: FDA-Public Use
  Company Number: US-BRISTOL-MYERS SQUIBB COMPANY-14455257

PATIENT
  Age: 80 Year
  Sex: Male
  Weight: 75 kg

DRUGS (1)
  1. SPRYCEL [Suspect]
     Indication: SQUAMOUS CELL CARCINOMA OF SKIN
     Dosage: CYCLE-28 DAYS.TOTAL-1500 MG COURSE-1.
     Route: 048
     Dates: start: 20071204, end: 20071211

REACTIONS (7)
  - DEHYDRATION [None]
  - FATIGUE [None]
  - HYPERGLYCAEMIA [None]
  - HYPONATRAEMIA [None]
  - INFECTION [None]
  - MALIGNANT NEOPLASM PROGRESSION [None]
  - MUSCULAR WEAKNESS [None]
